FAERS Safety Report 8153940-4 (Version None)
Quarter: 2012Q1

REPORT INFORMATION
  Report Type: 
  Country: None (occurrence: None)
  Receive Date: 20120221
  Receipt Date: 20120221
  Transmission Date: 20120608
  Serious: Yes (Life-Threatening, Hospitalization)
  Sender: FDA-Public Use
  Company Number: None

PATIENT
  Sex: Female
  Weight: 70.76 kg

DRUGS (1)
  1. NUVARING [Suspect]
     Indication: MENORRHAGIA
     Dosage: 1 RING
     Route: 067
     Dates: start: 20101101, end: 20110925

REACTIONS (3)
  - CARDIOMEGALY [None]
  - SKIN DISCOLOURATION [None]
  - PULMONARY EMBOLISM [None]
